FAERS Safety Report 5211998-6 (Version None)
Quarter: 2007Q1

REPORT INFORMATION
  Report Type: 
  Country: None (occurrence: None)
  Receive Date: 20070118
  Receipt Date: 20070108
  Transmission Date: 20070707
  Serious: Yes (Hospitalization)
  Sender: FDA-Public Use
  Company Number: FR-GLAXOSMITHKLINE-B0454212A

PATIENT
  Age: 47 Year
  Sex: Male
  Weight: 77 kg

DRUGS (9)
  1. ZELITREX [Suspect]
     Dosage: 500MG TWICE PER DAY
     Route: 048
     Dates: start: 20060201
  2. NORVIR [Suspect]
     Dosage: 100MG PER DAY
     Route: 048
     Dates: start: 20030101
  3. VIREAD [Suspect]
     Dosage: 1UNIT PER DAY
     Route: 048
     Dates: start: 20030101
  4. REYATAZ [Suspect]
     Dosage: 150MG PER DAY
     Route: 048
     Dates: start: 20030101
  5. EMTRIVA [Suspect]
     Route: 048
     Dates: start: 20060101
  6. BACLOFENE [Suspect]
     Dosage: 10MG PER DAY
     Route: 048
  7. MIXTARD HUMAN 70/30 [Concomitant]
     Route: 065
  8. ATARAX [Concomitant]
     Route: 065
  9. BACTRIM [Concomitant]
     Route: 065
     Dates: end: 20061015

REACTIONS (7)
  - ALANINE AMINOTRANSFERASE INCREASED [None]
  - BLISTER [None]
  - HAEMOGLOBINAEMIA [None]
  - MACROCYTOSIS [None]
  - PHOTOSENSITIVITY REACTION [None]
  - PRURIGO [None]
  - SKIN EXFOLIATION [None]
